FAERS Safety Report 5936659-7 (Version None)
Quarter: 2008Q4

REPORT INFORMATION
  Report Type: 
  Country: None (occurrence: None)
  Receive Date: 20081021
  Receipt Date: 20071009
  Transmission Date: 20090506
  Serious: No
  Sender: FDA-Public Use
  Company Number: HQWYE581416AUG07

PATIENT
  Age: 51 Year
  Sex: Female
  Weight: 81.72 kg

DRUGS (2)
  1. PREMARIN [Suspect]
     Indication: MENOPAUSE
     Dosage: 0.9 MG 1X PER 1 DAY, ORAL
     Route: 048
     Dates: start: 20070808, end: 20070815
  2. EFFEXOR XR [Concomitant]

REACTIONS (2)
  - DRUG INEFFECTIVE [None]
  - FATIGUE [None]
